FAERS Safety Report 19481171 (Version 1)
Quarter: 2021Q3

REPORT INFORMATION
  Report Type: Spontaneous
  Country: US (occurrence: US)
  Receive Date: 20210701
  Receipt Date: 20210701
  Transmission Date: 20211014
  Serious: No
  Sender: FDA-Public Use
  Company Number: US-TEVA-2021-US-1928119

PATIENT
  Age: 5 Decade
  Sex: Female

DRUGS (3)
  1. AJOVY [Suspect]
     Active Substance: FREMANEZUMAB-VFRM
  2. RIBOFLAVIN [Concomitant]
     Active Substance: RIBOFLAVIN
  3. AJOVY [Suspect]
     Active Substance: FREMANEZUMAB-VFRM
     Indication: MIGRAINE
     Route: 065
     Dates: start: 202104

REACTIONS (2)
  - Paraesthesia [Recovered/Resolved]
  - Pain of skin [Recovered/Resolved]
